FAERS Safety Report 6526199-9 (Version None)
Quarter: 2009Q4

REPORT INFORMATION
  Report Type: 
  Country: None (occurrence: None)
  Receive Date: 20091228
  Receipt Date: 20091218
  Transmission Date: 20100525
  Serious: Yes (Hospitalization, Other)
  Sender: FDA-Public Use
  Company Number: 232391J09USA

PATIENT
  Age: 58 Year
  Sex: Female
  Weight: 112 kg

DRUGS (6)
  1. REBIF [Suspect]
     Indication: MULTIPLE SCLEROSIS
     Dosage: 22 MCG, 3 IN 1 WEEKS, SUBCUTANEOUS
     Route: 058
     Dates: start: 20070813
  2. AMLODIPINE [Concomitant]
  3. FUROSEMIDE (FUROSEMIDE /00032601/) [Concomitant]
  4. POTASSIUM (POTASSIUM /00031401/) [Concomitant]
  5. GABAPENTIN [Concomitant]
  6. SIMVASTATIN [Concomitant]

REACTIONS (12)
  - ABDOMINAL DISCOMFORT [None]
  - ARRHYTHMIA [None]
  - ASTHENIA [None]
  - CARDIAC DISORDER [None]
  - CARDIAC STRESS TEST ABNORMAL [None]
  - CARDIOVASCULAR DISORDER [None]
  - CHEST PAIN [None]
  - DYSARTHRIA [None]
  - ELECTROCARDIOGRAM ABNORMAL [None]
  - URTICARIA [None]
  - UTERINE LEIOMYOMA [None]
  - UTERINE NEOPLASM [None]
